FAERS Safety Report 13532771 (Version 2)
Quarter: 2019Q2

REPORT INFORMATION
  Report Type: Spontaneous
  Country: US (occurrence: US)
  Receive Date: 20170510
  Receipt Date: 20190413
  Transmission Date: 20190711
  Serious: No
  Sender: FDA-Public Use
  Company Number: US-009507513-1705USA003184

PATIENT
  Age: 35 Year
  Sex: Female
  Weight: 94.79 kg

DRUGS (2)
  1. NUVARING [Suspect]
     Active Substance: ETHINYL ESTRADIOL\ETONOGESTREL
     Dosage: ONE RING FOR 3 WEEKS
     Route: 067
     Dates: start: 201803
  2. NUVARING [Suspect]
     Active Substance: ETHINYL ESTRADIOL\ETONOGESTREL
     Dosage: 1 RING/3 WEEKS
     Route: 067

REACTIONS (4)
  - Device expulsion [Unknown]
  - Product quality issue [Unknown]
  - Device expulsion [Unknown]
  - No adverse event [Unknown]

NARRATIVE: CASE EVENT DATE: 20190318
